FAERS Safety Report 5823090-8 (Version None)
Quarter: 2008Q3

REPORT INFORMATION
  Report Type: 
  Country: None (occurrence: None)
  Receive Date: 20080725
  Receipt Date: 20070807
  Transmission Date: 20090109
  Serious: No
  Sender: FDA-Public Use
  Company Number: US-AMGEN-KDL235754

PATIENT
  Sex: Female

DRUGS (7)
  1. PROCRIT [Suspect]
     Indication: DRUG USE FOR UNKNOWN INDICATION
     Dates: start: 20000101
  2. NEUPOGEN [Suspect]
     Route: 058
  3. SYNTHROID [Concomitant]
  4. ATENOLOL [Concomitant]
  5. GEMFIBROZIL [Concomitant]
  6. VITAMIN TAB [Concomitant]
  7. TRICOR [Concomitant]
     Dates: start: 20070802

REACTIONS (15)
  - AMNESIA [None]
  - BALANCE DISORDER [None]
  - BONE PAIN [None]
  - CONFUSIONAL STATE [None]
  - DELIRIUM [None]
  - DISORIENTATION [None]
  - FALL [None]
  - FEELING ABNORMAL [None]
  - HEADACHE [None]
  - INCORRECT DOSE ADMINISTERED [None]
  - INJECTION SITE HAEMATOMA [None]
  - LOSS OF CONSCIOUSNESS [None]
  - NAUSEA [None]
  - PALPITATIONS [None]
  - TREMOR [None]
